FAERS Safety Report 19483703 (Version 1)
Quarter: 2021Q3

REPORT INFORMATION
  Report Type: Spontaneous
  Country: US (occurrence: US)
  Receive Date: 20210701
  Receipt Date: 20210701
  Transmission Date: 20211014
  Serious: No
  Sender: FDA-Public Use
  Company Number: US-ROCHE-2631196

PATIENT
  Sex: Female
  Weight: 81.2 kg

DRUGS (14)
  1. GOCOVRI [Suspect]
     Active Substance: AMANTADINE
     Dosage: BEDTIME
     Route: 048
     Dates: start: 20200311, end: 2020
  2. CALCIUM [Concomitant]
     Active Substance: CALCIUM
  3. GOCOVRI [Suspect]
     Active Substance: AMANTADINE
     Dosage: 68.5 MG PLUS 137 AT BEDTIME
     Route: 048
     Dates: start: 20200304, end: 20200310
  4. GOCOVRI [Suspect]
     Active Substance: AMANTADINE
     Dosage: BEDTIME, ONGOING: YES
     Route: 048
     Dates: start: 202005
  5. GOCOVRI [Suspect]
     Active Substance: AMANTADINE
     Indication: DYSKINESIA
     Dosage: AT BEDTIME
     Route: 048
     Dates: start: 20200226, end: 20200303
  6. ATORVASTATIN [Concomitant]
     Active Substance: ATORVASTATIN
  7. SENNA [Concomitant]
     Active Substance: SENNA LEAF\SENNOSIDES\SENNOSIDES A AND B
  8. MEMANTINE. [Concomitant]
     Active Substance: MEMANTINE
  9. KLONOPIN [Suspect]
     Active Substance: CLONAZEPAM
     Indication: PRODUCT USED FOR UNKNOWN INDICATION
     Route: 065
  10. SENNA?S [DOCUSATE SODIUM;SENNOSIDE A+B] [Concomitant]
  11. MELATONIN [Concomitant]
     Active Substance: MELATONIN
  12. FORTEO [Concomitant]
     Active Substance: TERIPARATIDE
  13. NUPLAZID [Concomitant]
     Active Substance: PIMAVANSERIN TARTRATE
  14. RANITIDINE. [Concomitant]
     Active Substance: RANITIDINE

REACTIONS (11)
  - Hallucination [Unknown]
  - Fatigue [Unknown]
  - Fall [Recovered/Resolved]
  - Weight increased [Unknown]
  - Dry mouth [Unknown]
  - Constipation [Unknown]
  - Somnambulism [Unknown]
  - Depression [Unknown]
  - Insomnia [Unknown]
  - Dizziness [Not Recovered/Not Resolved]
  - Somnolence [Unknown]
